FAERS Safety Report 26203926 (Version 1)
Quarter: 2025Q4

REPORT INFORMATION
  Report Type: Spontaneous
  Country: GB (occurrence: GB)
  Receive Date: 20251226
  Receipt Date: 20251226
  Transmission Date: 20260117
  Serious: Yes (Death, Hospitalization, Other)
  Sender: BRISTOL-MYERS SQUIBB COMPANY
  Company Number: None

PATIENT
  Age: 77 Year
  Sex: Male
  Weight: 69 kg

DRUGS (10)
  1. NIVOLUMAB [Suspect]
     Active Substance: NIVOLUMAB
     Indication: Palliative care
     Route: 042
     Dates: start: 20251126, end: 20251218
  2. LANSOPRAZOLE [Concomitant]
     Active Substance: LANSOPRAZOLE
     Indication: Product used for unknown indication
     Dosage: 1 CAPSULE DAILY. 56 CAPSULE. PRESCRIPTION DATE 21-OCT-2025.
     Dates: start: 20250318
  3. CLOPIDOGREL [Concomitant]
     Active Substance: CLOPIDOGREL BISULFATE
     Indication: Product used for unknown indication
     Dosage: 1 TABLET ONCE A DAY AS PER VASCULAR CLINIC. 56 TABLET. PRESCRIPTION DATE 21-OCT-2025.
     Dates: start: 20250318
  4. PREDNISOLONE [Concomitant]
     Active Substance: PREDNISOLONE
     Indication: Product used for unknown indication
     Dosage: TAKE 4 TABLETS (4MG) ONCE DAILY AS PER LETTER FROM RHEUMATOLOGY DATED 21-OCT-2024. 224 TABLET. PRESCRIPTION DATE 22-AUG-2025, 21-OCT-2025.
     Dates: start: 20250318
  5. CYANOCOBALAMIN [Concomitant]
     Active Substance: CYANOCOBALAMIN
     Indication: Product used for unknown indication
     Dosage: TAKE ONE DAILY BETWEEN MEALS.?56 TABLET. PRESCRIPTION DATE 02-MAY-2025.
     Dates: start: 20250117
  6. SILDENAFIL [Concomitant]
     Active Substance: SILDENAFIL
     Indication: Product used for unknown indication
     Dosage: AS DIRECTED. 8 TABLET. PRESCRIPTION DATE 21-OCT-2025.
  7. CALCIUM CARBONATE\CHOLECALCIFEROL [Concomitant]
     Active Substance: CALCIUM CARBONATE\CHOLECALCIFEROL
     Indication: Product used for unknown indication
     Dosage: 2 TABLETS TWICE A DAY. 224 TABLET. PRESCRIPTION DATE 23-OCT-2024.?STRENGTH: 750MG/200UNIT CAPLETS
     Dates: start: 20250323
  8. ATORVASTATIN [Concomitant]
     Active Substance: ATORVASTATIN
     Indication: Product used for unknown indication
     Dosage: 1 AT NIGHT.  56 TABLET. PRESCRIPTION DATE 21-OCT-2025.
     Dates: start: 20250117
  9. PERINDOPRIL ERBUMINE [Concomitant]
     Active Substance: PERINDOPRIL ERBUMINE
     Indication: Product used for unknown indication
     Dosage: TAKE ONE TABLET DAILY.?56 TABLET. PRESCRIPTION DATE 21-OCT-2025.
     Dates: start: 20240726
  10. ALENDRONIC ACID [Concomitant]
     Active Substance: ALENDRONIC ACID
     Indication: Product used for unknown indication
     Dosage: TAKE ONE TABLET WEEKLY WHILE ON STEROIDS. SWALLOW TABLETS WHOLE WITH PLENTY OF WATER WHILE SITTING OR STANDING; TAKE ON AN EMPTY STOMACH AT LEAST 30 MINUTES BEFORE BREAKFAST OR ANY OTHER ORAL MEDICINE.?8 TABLET. PRESCRIPTION DATE 23-OCT-2024.
     Dates: start: 20241023

REACTIONS (4)
  - Hypotension [Not Recovered/Not Resolved]
  - Hyperglycaemia [Not Recovered/Not Resolved]
  - Multiple organ dysfunction syndrome [Not Recovered/Not Resolved]
  - Diabetic ketoacidosis [Fatal]

NARRATIVE: CASE EVENT DATE: 20251217
